FAERS Safety Report 18233419 (Version 49)
Quarter: 2025Q1

REPORT INFORMATION
  Report Type: Spontaneous
  Country: CA (occurrence: CA)
  Receive Date: 20200904
  Receipt Date: 20250214
  Transmission Date: 20250409
  Serious: Yes (Hospitalization, Other)
  Sender: BAUSCH AND LOMB
  Company Number: CA-BAUSCH-BL-2020-025040

PATIENT
  Age: 54 Year
  Sex: Female

DRUGS (259)
  1. BUDESONIDE [Suspect]
     Active Substance: BUDESONIDE
     Indication: Product used for unknown indication
     Route: 065
  2. BUDESONIDE [Suspect]
     Active Substance: BUDESONIDE
     Dosage: 3 EVERY 1 DAYS
     Route: 065
  3. BUDESONIDE [Suspect]
     Active Substance: BUDESONIDE
     Indication: Product used for unknown indication
     Route: 065
  4. BUDESONIDE [Suspect]
     Active Substance: BUDESONIDE
     Route: 065
  5. BUDESONIDE [Suspect]
     Active Substance: BUDESONIDE
     Route: 065
  6. BUDESONIDE [Suspect]
     Active Substance: BUDESONIDE
     Dosage: INTRA-NASAL
     Route: 065
  7. BUDESONIDE [Suspect]
     Active Substance: BUDESONIDE
     Dosage: INTRA-NASAL
     Route: 065
  8. BUDESONIDE [Suspect]
     Active Substance: BUDESONIDE
     Dosage: INTRA-NASAL
     Route: 065
  9. BUDESONIDE [Suspect]
     Active Substance: BUDESONIDE
     Route: 065
  10. BUDESONIDE [Suspect]
     Active Substance: BUDESONIDE
     Route: 065
  11. ALBUTEROL [Suspect]
     Active Substance: ALBUTEROL
     Indication: Asthma
     Route: 065
  12. ALBUTEROL [Suspect]
     Active Substance: ALBUTEROL
     Route: 065
  13. ALBUTEROL [Suspect]
     Active Substance: ALBUTEROL
     Route: 065
     Dates: start: 20000101
  14. ALBUTEROL [Suspect]
     Active Substance: ALBUTEROL
     Route: 065
  15. BUPROPION [Suspect]
     Active Substance: BUPROPION
     Indication: Product used for unknown indication
     Route: 065
  16. BUPROPION [Suspect]
     Active Substance: BUPROPION
     Route: 065
  17. ACYCLOVIR [Suspect]
     Active Substance: ACYCLOVIR
     Indication: Product used for unknown indication
     Route: 065
  18. ACYCLOVIR [Suspect]
     Active Substance: ACYCLOVIR
     Route: 016
  19. ACYCLOVIR [Suspect]
     Active Substance: ACYCLOVIR
     Route: 065
  20. BUPROPION HYDROBROMIDE [Suspect]
     Active Substance: BUPROPION HYDROBROMIDE
     Indication: Product used for unknown indication
     Route: 065
  21. BUPROPION HYDROBROMIDE [Suspect]
     Active Substance: BUPROPION HYDROBROMIDE
     Route: 065
  22. TRAMADOL [Suspect]
     Active Substance: TRAMADOL
     Indication: Product used for unknown indication
     Route: 065
  23. TRAMADOL [Suspect]
     Active Substance: TRAMADOL
     Route: 065
  24. TRAMADOL [Suspect]
     Active Substance: TRAMADOL
     Route: 065
  25. TRAMADOL [Suspect]
     Active Substance: TRAMADOL
     Route: 065
  26. TRAMADOL [Suspect]
     Active Substance: TRAMADOL
     Route: 065
  27. TRAMADOL [Suspect]
     Active Substance: TRAMADOL
     Dosage: TRAMADOL HYDROCHLORIDE
     Route: 065
  28. TRAMADOL [Suspect]
     Active Substance: TRAMADOL
     Route: 065
  29. TRAMADOL [Suspect]
     Active Substance: TRAMADOL
     Route: 065
  30. TRAMADOL [Suspect]
     Active Substance: TRAMADOL
     Dosage: TRAMADOL HYDROCHLORIDE
     Route: 065
  31. TRAMADOL [Suspect]
     Active Substance: TRAMADOL
     Route: 065
  32. TRAMADOL [Suspect]
     Active Substance: TRAMADOL
     Route: 065
  33. TRAMADOL [Suspect]
     Active Substance: TRAMADOL
     Dosage: TRAMADOL HYDROCHLORIDE
     Route: 065
  34. BUDESONIDE [Suspect]
     Active Substance: BUDESONIDE
     Indication: Product used for unknown indication
     Route: 045
  35. BUDESONIDE [Suspect]
     Active Substance: BUDESONIDE
     Dosage: INTRANASAL
     Route: 045
  36. BUDESONIDE [Suspect]
     Active Substance: BUDESONIDE
     Dosage: INTRANASAL
     Route: 045
  37. BUDESONIDE [Suspect]
     Active Substance: BUDESONIDE
     Dosage: INTRANASAL
     Route: 045
  38. BUDESONIDE [Suspect]
     Active Substance: BUDESONIDE
     Dosage: INTRANASAL
     Route: 065
  39. BUDESONIDE [Suspect]
     Active Substance: BUDESONIDE
     Dosage: INTRANASAL
     Route: 045
  40. BUDESONIDE [Suspect]
     Active Substance: BUDESONIDE
     Route: 045
  41. SPIRONOLACTONE [Suspect]
     Active Substance: SPIRONOLACTONE
     Indication: Product used for unknown indication
     Route: 065
  42. SPIRONOLACTONE [Suspect]
     Active Substance: SPIRONOLACTONE
     Route: 065
  43. SPIRONOLACTONE [Suspect]
     Active Substance: SPIRONOLACTONE
     Route: 048
  44. SPIRONOLACTONE [Suspect]
     Active Substance: SPIRONOLACTONE
     Route: 065
  45. LIOTHYRONINE SODIUM [Suspect]
     Active Substance: LIOTHYRONINE SODIUM
     Indication: Product used for unknown indication
     Route: 065
  46. LIOTHYRONINE SODIUM [Suspect]
     Active Substance: LIOTHYRONINE SODIUM
     Route: 065
  47. LIOTHYRONINE SODIUM [Suspect]
     Active Substance: LIOTHYRONINE SODIUM
     Route: 048
  48. VITAMIN B12 [Suspect]
     Active Substance: CYANOCOBALAMIN
     Indication: Product used for unknown indication
     Route: 065
  49. BUDESONIDE\FORMOTEROL FUMARATE [Suspect]
     Active Substance: BUDESONIDE\FORMOTEROL FUMARATE
     Indication: Product used for unknown indication
     Route: 065
  50. BUDESONIDE\FORMOTEROL FUMARATE [Suspect]
     Active Substance: BUDESONIDE\FORMOTEROL FUMARATE
     Route: 065
  51. BUDESONIDE\FORMOTEROL FUMARATE [Suspect]
     Active Substance: BUDESONIDE\FORMOTEROL FUMARATE
     Route: 065
  52. BUDESONIDE\FORMOTEROL FUMARATE [Suspect]
     Active Substance: BUDESONIDE\FORMOTEROL FUMARATE
     Route: 065
  53. BUDESONIDE\FORMOTEROL FUMARATE [Suspect]
     Active Substance: BUDESONIDE\FORMOTEROL FUMARATE
     Route: 065
  54. BUDESONIDE\FORMOTEROL FUMARATE [Suspect]
     Active Substance: BUDESONIDE\FORMOTEROL FUMARATE
     Route: 065
  55. BUDESONIDE\FORMOTEROL FUMARATE [Suspect]
     Active Substance: BUDESONIDE\FORMOTEROL FUMARATE
     Dosage: INTRA-NASAL
     Route: 045
  56. BUDESONIDE\FORMOTEROL FUMARATE [Suspect]
     Active Substance: BUDESONIDE\FORMOTEROL FUMARATE
     Route: 065
  57. BUDESONIDE\FORMOTEROL FUMARATE [Suspect]
     Active Substance: BUDESONIDE\FORMOTEROL FUMARATE
     Route: 065
  58. BUDESONIDE\FORMOTEROL FUMARATE [Suspect]
     Active Substance: BUDESONIDE\FORMOTEROL FUMARATE
     Route: 065
  59. BUDESONIDE\FORMOTEROL FUMARATE [Suspect]
     Active Substance: BUDESONIDE\FORMOTEROL FUMARATE
     Route: 065
  60. BUDESONIDE\FORMOTEROL FUMARATE [Suspect]
     Active Substance: BUDESONIDE\FORMOTEROL FUMARATE
     Route: 045
  61. BUDESONIDE\FORMOTEROL FUMARATE [Suspect]
     Active Substance: BUDESONIDE\FORMOTEROL FUMARATE
     Route: 065
  62. BUDESONIDE\FORMOTEROL FUMARATE [Suspect]
     Active Substance: BUDESONIDE\FORMOTEROL FUMARATE
     Dosage: INTRA-NASAL
     Route: 045
  63. BUDESONIDE\FORMOTEROL FUMARATE [Suspect]
     Active Substance: BUDESONIDE\FORMOTEROL FUMARATE
     Route: 065
  64. BUDESONIDE\FORMOTEROL FUMARATE [Suspect]
     Active Substance: BUDESONIDE\FORMOTEROL FUMARATE
     Route: 065
  65. MOMETASONE [Suspect]
     Active Substance: MOMETASONE
     Indication: Product used for unknown indication
     Dosage: 2 SPRAYS IN EACH NOSTRIL
     Route: 045
     Dates: start: 2018
  66. MOMETASONE [Suspect]
     Active Substance: MOMETASONE
     Route: 065
  67. MOMETASONE [Suspect]
     Active Substance: MOMETASONE
     Dosage: INTRA-NASAL
     Route: 045
  68. MOMETASONE [Suspect]
     Active Substance: MOMETASONE
     Route: 065
  69. MOMETASONE [Suspect]
     Active Substance: MOMETASONE
     Dosage: INTRA-NASAL
     Route: 045
  70. MOMETASONE [Suspect]
     Active Substance: MOMETASONE
     Dosage: SPRAY, METERED DOSE
     Route: 045
  71. MOMETASONE [Suspect]
     Active Substance: MOMETASONE
     Dosage: INTRA-NASAL
     Route: 045
  72. MOMETASONE [Suspect]
     Active Substance: MOMETASONE
     Dosage: INTRA-NASAL
     Route: 045
  73. MOMETASONE [Suspect]
     Active Substance: MOMETASONE
     Route: 065
  74. MOMETASONE [Suspect]
     Active Substance: MOMETASONE
     Route: 065
  75. MOMETASONE [Suspect]
     Active Substance: MOMETASONE
     Dosage: MOMETASONE FUROATE
     Route: 065
  76. MOMETASONE [Suspect]
     Active Substance: MOMETASONE
     Dosage: MOMETASONE FUROATE
     Route: 065
  77. MOMETASONE [Suspect]
     Active Substance: MOMETASONE
     Dosage: MOMETASONE FUROATE
     Route: 065
  78. MOMETASONE [Suspect]
     Active Substance: MOMETASONE
     Dosage: INTRA-NASAL
     Route: 045
  79. MOMETASONE [Suspect]
     Active Substance: MOMETASONE
     Route: 045
  80. MOMETASONE [Suspect]
     Active Substance: MOMETASONE
     Route: 065
  81. MOMETASONE [Suspect]
     Active Substance: MOMETASONE
     Route: 065
  82. MOMETASONE [Suspect]
     Active Substance: MOMETASONE
     Dosage: MOMETASONE, INTRA-NASAL
     Route: 045
  83. MOMETASONE [Suspect]
     Active Substance: MOMETASONE
     Dosage: MOMETASONE
     Route: 065
  84. MOMETASONE [Suspect]
     Active Substance: MOMETASONE
     Route: 065
  85. MOMETASONE [Suspect]
     Active Substance: MOMETASONE
     Dosage: MOMETASONE, INTRA-NASAL
     Route: 045
  86. MOMETASONE [Suspect]
     Active Substance: MOMETASONE
     Dosage: MOMETASONE, INTRA-NASAL
     Route: 045
  87. MOMETASONE [Suspect]
     Active Substance: MOMETASONE
     Dosage: MOMETASONE FUROATE
     Route: 065
  88. MOMETASONE [Suspect]
     Active Substance: MOMETASONE
     Dosage: MOMETASONE FUROATE, INTRANASAL
     Route: 045
  89. MOMETASONE [Suspect]
     Active Substance: MOMETASONE
     Dosage: MOMETASONE FUROATE, INTRANASAL
     Route: 045
  90. MOMETASONE [Suspect]
     Active Substance: MOMETASONE
     Route: 045
  91. MOMETASONE [Suspect]
     Active Substance: MOMETASONE
     Route: 065
  92. MOMETASONE [Suspect]
     Active Substance: MOMETASONE
     Route: 065
  93. PREDNISONE [Suspect]
     Active Substance: PREDNISONE
     Indication: Product used for unknown indication
     Route: 065
  94. PREDNISONE [Suspect]
     Active Substance: PREDNISONE
     Route: 065
  95. SYMBICORT [Suspect]
     Active Substance: BUDESONIDE\FORMOTEROL FUMARATE DIHYDRATE
     Indication: Product used for unknown indication
     Dosage: 1 PUFF(S) 3 IN 1 DAY, 200 MCG/6 MCG
     Route: 055
     Dates: start: 20100101
  96. SYMBICORT [Suspect]
     Active Substance: BUDESONIDE\FORMOTEROL FUMARATE DIHYDRATE
     Route: 065
  97. SYMBICORT [Suspect]
     Active Substance: BUDESONIDE\FORMOTEROL FUMARATE DIHYDRATE
     Dosage: SYMBICORT TURBUHALER
     Route: 065
  98. APIXABAN [Suspect]
     Active Substance: APIXABAN
     Indication: Product used for unknown indication
     Route: 065
  99. APIXABAN [Suspect]
     Active Substance: APIXABAN
     Dosage: INTRACARDIAC
     Route: 016
  100. APIXABAN [Suspect]
     Active Substance: APIXABAN
     Route: 065
  101. APIXABAN [Suspect]
     Active Substance: APIXABAN
     Route: 016
  102. APIXABAN [Suspect]
     Active Substance: APIXABAN
     Route: 065
  103. APIXABAN [Suspect]
     Active Substance: APIXABAN
     Route: 016
  104. METOPROLOL [Suspect]
     Active Substance: METOPROLOL
     Indication: Product used for unknown indication
     Route: 065
  105. METOPROLOL [Suspect]
     Active Substance: METOPROLOL
     Route: 065
  106. METOPROLOL [Suspect]
     Active Substance: METOPROLOL
     Route: 065
  107. PERINDOPRIL [Suspect]
     Active Substance: PERINDOPRIL
     Indication: Product used for unknown indication
     Route: 065
  108. PERINDOPRIL [Suspect]
     Active Substance: PERINDOPRIL
     Route: 065
  109. PERINDOPRIL [Suspect]
     Active Substance: PERINDOPRIL
     Route: 065
  110. PERINDOPRIL [Suspect]
     Active Substance: PERINDOPRIL
     Route: 065
  111. PERINDOPRIL [Suspect]
     Active Substance: PERINDOPRIL
     Route: 065
  112. PERINDOPRIL [Suspect]
     Active Substance: PERINDOPRIL
     Route: 065
  113. PERINDOPRIL [Suspect]
     Active Substance: PERINDOPRIL
     Route: 065
  114. PERINDOPRIL [Suspect]
     Active Substance: PERINDOPRIL
     Route: 016
  115. ESOMEPRAZOLE [Suspect]
     Active Substance: ESOMEPRAZOLE
     Indication: Product used for unknown indication
     Route: 065
  116. ESOMEPRAZOLE [Suspect]
     Active Substance: ESOMEPRAZOLE
     Route: 065
  117. ESOMEPRAZOLE [Suspect]
     Active Substance: ESOMEPRAZOLE
     Route: 048
  118. TRAZODONE [Suspect]
     Active Substance: TRAZODONE HYDROCHLORIDE
     Indication: Product used for unknown indication
     Route: 065
  119. TRAZODONE [Suspect]
     Active Substance: TRAZODONE HYDROCHLORIDE
     Route: 065
  120. TRAZODONE [Suspect]
     Active Substance: TRAZODONE HYDROCHLORIDE
     Route: 065
  121. CLONAZEPAM [Suspect]
     Active Substance: CLONAZEPAM
     Indication: Product used for unknown indication
     Route: 065
  122. CLONAZEPAM [Suspect]
     Active Substance: CLONAZEPAM
     Route: 048
  123. NASONEX [Suspect]
     Active Substance: MOMETASONE FUROATE
     Indication: Product used for unknown indication
     Route: 065
  124. NASONEX [Suspect]
     Active Substance: MOMETASONE FUROATE
     Route: 065
  125. NASONEX [Suspect]
     Active Substance: MOMETASONE FUROATE
     Route: 065
  126. SODIUM BICARBONATE\SODIUM CHLORIDE [Suspect]
     Active Substance: SODIUM BICARBONATE\SODIUM CHLORIDE
     Indication: Product used for unknown indication
     Route: 065
  127. SODIUM BICARBONATE\SODIUM CHLORIDE [Suspect]
     Active Substance: SODIUM BICARBONATE\SODIUM CHLORIDE
     Route: 065
  128. SODIUM BICARBONATE\SODIUM CHLORIDE [Suspect]
     Active Substance: SODIUM BICARBONATE\SODIUM CHLORIDE
     Route: 065
  129. SODIUM BICARBONATE\SODIUM CHLORIDE [Suspect]
     Active Substance: SODIUM BICARBONATE\SODIUM CHLORIDE
     Route: 065
  130. SODIUM BICARBONATE\SODIUM CHLORIDE [Suspect]
     Active Substance: SODIUM BICARBONATE\SODIUM CHLORIDE
     Route: 065
  131. SODIUM BICARBONATE\SODIUM CHLORIDE [Suspect]
     Active Substance: SODIUM BICARBONATE\SODIUM CHLORIDE
     Route: 065
  132. ACYCLOVIR [Suspect]
     Active Substance: ACYCLOVIR
     Indication: Product used for unknown indication
     Route: 065
  133. HYALURONATE SODIUM [Suspect]
     Active Substance: HYALURONATE SODIUM
     Indication: Product used for unknown indication
     Route: 065
  134. TRAMADOL HYDROCHLORIDE [Suspect]
     Active Substance: TRAMADOL HYDROCHLORIDE
     Indication: Product used for unknown indication
     Route: 065
  135. TRAMADOL HYDROCHLORIDE [Suspect]
     Active Substance: TRAMADOL HYDROCHLORIDE
     Route: 065
  136. TRAMADOL HYDROCHLORIDE [Suspect]
     Active Substance: TRAMADOL HYDROCHLORIDE
     Route: 065
  137. TRAMADOL HYDROCHLORIDE [Suspect]
     Active Substance: TRAMADOL HYDROCHLORIDE
     Route: 065
  138. ERGOCALCIFEROL [Suspect]
     Active Substance: ERGOCALCIFEROL
     Indication: Product used for unknown indication
     Route: 065
  139. ERGOCALCIFEROL [Suspect]
     Active Substance: ERGOCALCIFEROL
     Route: 065
  140. ERGOCALCIFEROL [Suspect]
     Active Substance: ERGOCALCIFEROL
     Route: 065
  141. EUFLEXXA [Suspect]
     Active Substance: HYALURONATE SODIUM
     Indication: Product used for unknown indication
     Route: 065
  142. SODIUM CHLORIDE [Suspect]
     Active Substance: SODIUM CHLORIDE
     Indication: Product used for unknown indication
     Route: 065
  143. SODIUM CHLORIDE [Suspect]
     Active Substance: SODIUM CHLORIDE
     Route: 065
  144. SODIUM CHLORIDE [Suspect]
     Active Substance: SODIUM CHLORIDE
     Route: 065
  145. SODIUM CHLORIDE [Suspect]
     Active Substance: SODIUM CHLORIDE
     Route: 065
  146. ULTRAM [Suspect]
     Active Substance: TRAMADOL HYDROCHLORIDE
     Indication: Product used for unknown indication
     Route: 065
  147. ULTRAM [Suspect]
     Active Substance: TRAMADOL HYDROCHLORIDE
     Route: 065
  148. ULTRAM [Suspect]
     Active Substance: TRAMADOL HYDROCHLORIDE
     Route: 065
  149. ULTRAM [Suspect]
     Active Substance: TRAMADOL HYDROCHLORIDE
     Route: 065
  150. ULTRAM [Suspect]
     Active Substance: TRAMADOL HYDROCHLORIDE
     Route: 065
  151. BUDESONIDE\FORMOTEROL FUMARATE [Suspect]
     Active Substance: BUDESONIDE\FORMOTEROL FUMARATE
     Indication: Product used for unknown indication
     Route: 065
  152. VITAMIN C [Suspect]
     Active Substance: ASCORBIC ACID
     Indication: Product used for unknown indication
     Route: 065
  153. VITAMIN C [Suspect]
     Active Substance: ASCORBIC ACID
     Route: 065
  154. VITAMIN C [Suspect]
     Active Substance: ASCORBIC ACID
     Route: 065
  155. VITAMIN C [Suspect]
     Active Substance: ASCORBIC ACID
     Route: 065
  156. VITAMIN C [Suspect]
     Active Substance: ASCORBIC ACID
     Route: 065
  157. VITAMIN C [Suspect]
     Active Substance: ASCORBIC ACID
     Route: 065
  158. VITAMIN C [Suspect]
     Active Substance: ASCORBIC ACID
     Route: 065
  159. VITAMIN C [Suspect]
     Active Substance: ASCORBIC ACID
     Route: 065
  160. DIETARY SUPPLEMENT [Suspect]
     Active Substance: DIETARY SUPPLEMENT
     Indication: Product used for unknown indication
     Route: 065
  161. DIETARY SUPPLEMENT [Suspect]
     Active Substance: DIETARY SUPPLEMENT
     Route: 048
  162. FORMOTEROL [Suspect]
     Active Substance: FORMOTEROL
     Indication: Product used for unknown indication
     Route: 065
  163. FORMOTEROL [Suspect]
     Active Substance: FORMOTEROL
     Route: 065
  164. FORMOTEROL [Suspect]
     Active Substance: FORMOTEROL
     Route: 065
  165. FORMOTEROL [Suspect]
     Active Substance: FORMOTEROL
     Dosage: FORMOTEROL FUMARATE
     Route: 065
  166. FORMOTEROL [Suspect]
     Active Substance: FORMOTEROL
     Route: 065
  167. FORMOTEROL [Suspect]
     Active Substance: FORMOTEROL
     Dosage: FORMOTEROL FUMARATE
     Route: 065
  168. VITAMIN D3 [Suspect]
     Active Substance: CHOLECALCIFEROL
     Indication: Product used for unknown indication
     Route: 065
  169. VITAMIN D3 [Suspect]
     Active Substance: CHOLECALCIFEROL
     Route: 065
  170. CYANOCOBALAMIN\FOLIC ACID [Suspect]
     Active Substance: CYANOCOBALAMIN\FOLIC ACID
     Indication: Product used for unknown indication
     Route: 065
  171. CYANOCOBALAMIN\FOLIC ACID [Suspect]
     Active Substance: CYANOCOBALAMIN\FOLIC ACID
     Route: 065
  172. ELIQUIS [Suspect]
     Active Substance: APIXABAN
     Indication: Product used for unknown indication
     Route: 065
  173. LEVOTHYROXINE [Suspect]
     Active Substance: LEVOTHYROXINE
     Indication: Product used for unknown indication
     Route: 065
  174. LEVOTHYROXINE [Suspect]
     Active Substance: LEVOTHYROXINE
     Route: 065
  175. LEVOTHYROXINE [Suspect]
     Active Substance: LEVOTHYROXINE
     Route: 048
  176. LEVOTHYROXINE [Suspect]
     Active Substance: LEVOTHYROXINE
     Route: 065
  177. SODIUM CHLORIDE [Suspect]
     Active Substance: SODIUM CHLORIDE
     Indication: Product used for unknown indication
     Route: 045
  178. MONTELUKAST [Suspect]
     Active Substance: MONTELUKAST
     Indication: Product used for unknown indication
     Route: 065
  179. MONTELUKAST [Suspect]
     Active Substance: MONTELUKAST
     Route: 065
  180. MONTELUKAST [Suspect]
     Active Substance: MONTELUKAST
     Route: 016
  181. HYALURONATE SODIUM [Suspect]
     Active Substance: HYALURONATE SODIUM
     Indication: Product used for unknown indication
     Route: 065
  182. HYALURONATE SODIUM [Suspect]
     Active Substance: HYALURONATE SODIUM
     Route: 048
  183. HYALURONATE SODIUM [Suspect]
     Active Substance: HYALURONATE SODIUM
     Route: 065
  184. VITAMIN D NOS [Suspect]
     Active Substance: CHOLECALCIFEROL\ERGOCALCIFEROL
     Indication: Product used for unknown indication
     Route: 065
  185. VITAMIN D NOS [Suspect]
     Active Substance: CHOLECALCIFEROL\ERGOCALCIFEROL
     Route: 065
  186. DIETARY SUPPLEMENT\HERBALS [Suspect]
     Active Substance: DIETARY SUPPLEMENT\HERBALS
     Indication: Product used for unknown indication
     Route: 065
  187. DIETARY SUPPLEMENT\HERBALS [Suspect]
     Active Substance: DIETARY SUPPLEMENT\HERBALS
     Route: 065
  188. DIETARY SUPPLEMENT\HERBALS [Suspect]
     Active Substance: DIETARY SUPPLEMENT\HERBALS
     Route: 065
  189. DIETARY SUPPLEMENT\HERBALS [Suspect]
     Active Substance: DIETARY SUPPLEMENT\HERBALS
     Route: 065
  190. DIETARY SUPPLEMENT\HERBALS [Suspect]
     Active Substance: DIETARY SUPPLEMENT\HERBALS
     Route: 065
  191. DIETARY SUPPLEMENT\HERBALS [Suspect]
     Active Substance: DIETARY SUPPLEMENT\HERBALS
     Route: 048
  192. DIETARY SUPPLEMENT\HERBALS [Suspect]
     Active Substance: DIETARY SUPPLEMENT\HERBALS
     Route: 065
  193. DIETARY SUPPLEMENT\HERBALS [Suspect]
     Active Substance: DIETARY SUPPLEMENT\HERBALS
     Route: 048
  194. DIETARY SUPPLEMENT\HERBALS [Suspect]
     Active Substance: DIETARY SUPPLEMENT\HERBALS
     Route: 065
  195. DIETARY SUPPLEMENT\HERBALS [Suspect]
     Active Substance: DIETARY SUPPLEMENT\HERBALS
     Route: 065
  196. DIETARY SUPPLEMENT [Suspect]
     Active Substance: DIETARY SUPPLEMENT
     Indication: Product used for unknown indication
     Route: 065
  197. DIETARY SUPPLEMENT [Suspect]
     Active Substance: DIETARY SUPPLEMENT
     Route: 048
  198. SODIUM BICARBONATE [Suspect]
     Active Substance: SODIUM BICARBONATE
     Indication: Product used for unknown indication
     Route: 065
  199. COBAMAMIDE [Suspect]
     Active Substance: COBAMAMIDE
     Indication: Product used for unknown indication
     Route: 065
  200. SEA WATER [Suspect]
     Active Substance: SEA WATER
     Indication: Product used for unknown indication
     Route: 065
  201. ALBUTEROL [Suspect]
     Active Substance: ALBUTEROL
     Indication: Product used for unknown indication
     Route: 065
  202. ALBUTEROL [Suspect]
     Active Substance: ALBUTEROL
     Route: 016
  203. ALBUTEROL [Suspect]
     Active Substance: ALBUTEROL
     Route: 016
  204. POLYETHYLENE GLYCOL\PROPYLENE GLYCOL [Suspect]
     Active Substance: POLYETHYLENE GLYCOL\PROPYLENE GLYCOL
     Indication: Product used for unknown indication
     Route: 065
  205. ACETAMINOPHEN\TRAMADOL [Suspect]
     Active Substance: ACETAMINOPHEN\TRAMADOL
     Indication: Product used for unknown indication
     Route: 065
  206. ACETAMINOPHEN\TRAMADOL [Suspect]
     Active Substance: ACETAMINOPHEN\TRAMADOL
     Dosage: APO-TRAMADOL/ACET
     Route: 065
  207. ACETAMINOPHEN\TRAMADOL [Suspect]
     Active Substance: ACETAMINOPHEN\TRAMADOL
     Dosage: APO-TRAMADOL/ACET
     Route: 065
  208. ACETAMINOPHEN\TRAMADOL [Suspect]
     Active Substance: ACETAMINOPHEN\TRAMADOL
     Route: 065
  209. ACETAMINOPHEN\TRAMADOL [Suspect]
     Active Substance: ACETAMINOPHEN\TRAMADOL
     Route: 065
  210. CHOLECALCIFEROL [Suspect]
     Active Substance: CHOLECALCIFEROL
     Indication: Product used for unknown indication
     Route: 065
  211. LIOTHYRONINE SODIUM [Suspect]
     Active Substance: LIOTHYRONINE SODIUM
     Indication: Product used for unknown indication
     Route: 065
  212. LIOTHYRONINE SODIUM [Suspect]
     Active Substance: LIOTHYRONINE SODIUM
     Route: 048
  213. CYANOCOBALAMIN [Suspect]
     Active Substance: CYANOCOBALAMIN
     Indication: Product used for unknown indication
     Route: 065
  214. CYANOCOBALAMIN [Suspect]
     Active Substance: CYANOCOBALAMIN
     Route: 065
  215. CYANOCOBALAMIN [Suspect]
     Active Substance: CYANOCOBALAMIN
     Route: 065
  216. CHOLECALCIFEROL [Suspect]
     Active Substance: CHOLECALCIFEROL
     Indication: Product used for unknown indication
     Route: 065
  217. ACYCLOVIR [Concomitant]
     Active Substance: ACYCLOVIR
     Indication: Product used for unknown indication
  218. ACYCLOVIR [Concomitant]
     Active Substance: ACYCLOVIR
     Route: 065
  219. ACYCLOVIR [Concomitant]
     Active Substance: ACYCLOVIR
     Route: 016
  220. BUDESONIDE\FORMOTEROL FUMARATE [Concomitant]
     Active Substance: BUDESONIDE\FORMOTEROL FUMARATE
     Indication: Product used for unknown indication
  221. BUDESONIDE\FORMOTEROL FUMARATE [Concomitant]
     Active Substance: BUDESONIDE\FORMOTEROL FUMARATE
  222. BUDESONIDE\FORMOTEROL FUMARATE [Concomitant]
     Active Substance: BUDESONIDE\FORMOTEROL FUMARATE
  223. BUDESONIDE\FORMOTEROL FUMARATE [Concomitant]
     Active Substance: BUDESONIDE\FORMOTEROL FUMARATE
     Dosage: INTRA-NASAL
     Route: 045
  224. BUDESONIDE\FORMOTEROL FUMARATE [Concomitant]
     Active Substance: BUDESONIDE\FORMOTEROL FUMARATE
  225. BUPROPION HYDROCHLORIDE [Concomitant]
     Active Substance: BUPROPION HYDROCHLORIDE
     Indication: Product used for unknown indication
     Route: 065
  226. CYANOCOBALAMIN [Concomitant]
     Active Substance: CYANOCOBALAMIN
     Indication: Product used for unknown indication
     Route: 065
  227. CYANOCOBALAMIN [Concomitant]
     Active Substance: CYANOCOBALAMIN
     Route: 065
  228. FORMOTEROL [Concomitant]
     Active Substance: FORMOTEROL
     Indication: Product used for unknown indication
  229. FORMOTEROL [Concomitant]
     Active Substance: FORMOTEROL
  230. LEVOTHYROXINE SODIUM [Concomitant]
     Active Substance: LEVOTHYROXINE SODIUM
     Indication: Product used for unknown indication
     Route: 065
  231. LEVOTHYROXINE SODIUM [Concomitant]
     Active Substance: LEVOTHYROXINE SODIUM
     Route: 048
  232. METOPROLOL [Concomitant]
     Active Substance: METOPROLOL
     Indication: Product used for unknown indication
     Route: 065
  233. METOPROLOL [Concomitant]
     Active Substance: METOPROLOL
  234. MOMETASONE [Concomitant]
     Active Substance: MOMETASONE
     Indication: Product used for unknown indication
     Route: 065
  235. MOMETASONE [Concomitant]
     Active Substance: MOMETASONE
     Route: 045
  236. MOMETASONE [Concomitant]
     Active Substance: MOMETASONE
     Route: 045
  237. MOMETASONE [Concomitant]
     Active Substance: MOMETASONE
     Route: 045
  238. MOMETASONE [Concomitant]
     Active Substance: MOMETASONE
     Dosage: SPRAY, METERED DOSE
     Route: 045
  239. MONTELUKAST SODIUM [Concomitant]
     Active Substance: MONTELUKAST SODIUM
     Indication: Product used for unknown indication
     Route: 065
  240. NASONEX [Concomitant]
     Active Substance: MOMETASONE FUROATE
     Indication: Product used for unknown indication
  241. PERINDOPRIL [Concomitant]
     Active Substance: PERINDOPRIL
     Indication: Product used for unknown indication
     Route: 065
  242. PERINDOPRIL [Concomitant]
     Active Substance: PERINDOPRIL
     Route: 016
  243. PREDNISONE [Concomitant]
     Active Substance: PREDNISONE
     Indication: Product used for unknown indication
     Route: 065
  244. SODIUM BICARBONATE [Concomitant]
     Active Substance: SODIUM BICARBONATE
     Indication: Product used for unknown indication
     Route: 065
  245. SODIUM BICARBONATE\SODIUM CHLORIDE [Concomitant]
     Active Substance: SODIUM BICARBONATE\SODIUM CHLORIDE
     Indication: Product used for unknown indication
     Route: 065
  246. SODIUM BICARBONATE\SODIUM CHLORIDE [Concomitant]
     Active Substance: SODIUM BICARBONATE\SODIUM CHLORIDE
     Route: 065
  247. SODIUM BICARBONATE\SODIUM CHLORIDE [Concomitant]
     Active Substance: SODIUM BICARBONATE\SODIUM CHLORIDE
     Route: 065
  248. SODIUM BICARBONATE\SODIUM CHLORIDE [Concomitant]
     Active Substance: SODIUM BICARBONATE\SODIUM CHLORIDE
     Route: 065
  249. SPIRONOLACTONE [Concomitant]
     Active Substance: SPIRONOLACTONE
     Indication: Product used for unknown indication
     Route: 065
  250. SPIRONOLACTONE [Concomitant]
     Active Substance: SPIRONOLACTONE
     Route: 048
  251. SPIRONOLACTONE [Concomitant]
     Active Substance: SPIRONOLACTONE
     Route: 065
  252. TRAMADOL HYDROCHLORIDE [Concomitant]
     Active Substance: TRAMADOL HYDROCHLORIDE
     Indication: Product used for unknown indication
     Route: 065
  253. TRAZODONE [Concomitant]
     Active Substance: TRAZODONE HYDROCHLORIDE
     Indication: Product used for unknown indication
     Route: 065
  254. TRAZODONE [Concomitant]
     Active Substance: TRAZODONE HYDROCHLORIDE
     Route: 065
  255. ULTRAM [Concomitant]
     Active Substance: TRAMADOL HYDROCHLORIDE
     Indication: Product used for unknown indication
     Route: 065
  256. ULTRAM [Concomitant]
     Active Substance: TRAMADOL HYDROCHLORIDE
     Route: 065
  257. ULTRAM [Concomitant]
     Active Substance: TRAMADOL HYDROCHLORIDE
     Route: 065
  258. ERGOCALCIFEROL [Concomitant]
     Active Substance: ERGOCALCIFEROL
     Indication: Product used for unknown indication
     Route: 065
  259. VENTOLIN [Concomitant]
     Active Substance: ALBUTEROL SULFATE
     Indication: Product used for unknown indication
     Route: 065

REACTIONS (36)
  - Hospitalisation [Recovered/Resolved]
  - Nephrectomy [Recovered/Resolved]
  - Asthma [Recovered/Resolved]
  - Blood test abnormal [Recovered/Resolved]
  - Full blood count abnormal [Recovered/Resolved]
  - Adverse event [Recovered/Resolved]
  - Renal disorder [Recovered/Resolved]
  - Asthma [Recovered/Resolved]
  - Hypothyroidism [Recovered/Resolved]
  - Ejection fraction [Recovered/Resolved]
  - Loss of personal independence in daily activities [Recovered/Resolved]
  - Dyspnoea [Recovered/Resolved]
  - Fibromyalgia [Recovered/Resolved]
  - Polycystic ovarian syndrome [Recovered/Resolved]
  - Gastrooesophageal reflux disease [Recovered/Resolved]
  - Carpal tunnel syndrome [Recovered/Resolved]
  - Cardiac disorder [Recovered/Resolved]
  - Obstructive sleep apnoea syndrome [Recovered/Resolved]
  - Sleep disorder due to a general medical condition [Recovered/Resolved]
  - Sleep apnoea syndrome [Recovered/Resolved]
  - Sensitisation [Recovered/Resolved]
  - Ejection fraction abnormal [Recovered/Resolved]
  - Polycystic ovaries [Recovered/Resolved]
  - Ejection fraction [Recovered/Resolved]
  - Burning sensation [Recovered/Resolved]
  - Nephropathy [Recovered/Resolved]
  - Sleep disorder due to general medical condition, insomnia type [Recovered/Resolved]
  - Loss of personal independence in daily activities [Recovered/Resolved]
  - Dyspnoea [Recovered/Resolved]
  - Rhinitis allergic [Recovered/Resolved]
  - Headache [Recovered/Resolved]
  - Hypertension [Recovered/Resolved]
  - Wheezing [Recovered/Resolved]
  - Rhinitis allergic [Recovered/Resolved]
  - Therapeutic product effect incomplete [Recovered/Resolved]
  - Intentional product use issue [Recovered/Resolved]
